FAERS Safety Report 12271511 (Version 4)
Quarter: 2016Q4

REPORT INFORMATION
  Report Type: Report from Study
  Country: GB (occurrence: GB)
  Receive Date: 20160415
  Receipt Date: 20161014
  Transmission Date: 20170207
  Serious: Yes (Hospitalization, Other)
  Sender: FDA-Public Use
  Company Number: PHFR2015GB006924

PATIENT
  Age: 68 Year
  Sex: Female
  Weight: 81 kg

DRUGS (17)
  1. AFINITOR [Suspect]
     Active Substance: EVEROLIMUS
     Indication: BREAST CANCER METASTATIC
     Dosage: 10 MG, QD
     Route: 048
     Dates: start: 20150707, end: 20150917
  2. AFINITOR [Suspect]
     Active Substance: EVEROLIMUS
     Dosage: 10 MG, QD
     Route: 048
     Dates: start: 20151103
  3. BENZYDAMINE [Concomitant]
     Active Substance: BENZYDAMINE
     Indication: PRODUCT USED FOR UNKNOWN INDICATION
     Dosage: 15 ML, Q4H FOR 28 DAYS (MOUTHWASH)
     Route: 065
     Dates: start: 20150918
  4. CHLORHEXIDINE [Concomitant]
     Active Substance: CHLORHEXIDINE
     Indication: PRODUCT USED FOR UNKNOWN INDICATION
     Dosage: 10 ML, QID FOR 28 DAYS
     Route: 065
     Dates: start: 20150918
  5. IBUPROFEN. [Concomitant]
     Active Substance: IBUPROFEN
     Indication: PAIN
     Dosage: 200 MG, QD
     Route: 048
     Dates: start: 20110712
  6. SALBUTAMOL [Concomitant]
     Active Substance: ALBUTEROL
     Indication: BRONCHOSPASM
     Dosage: 2  PUFF
     Route: 065
     Dates: start: 20110712
  7. LORATADINE. [Concomitant]
     Active Substance: LORATADINE
     Indication: HISTAMINE LEVEL INCREASED
     Dosage: 10 MG, QD
     Route: 048
     Dates: start: 20110712
  8. COCODAMOL [Concomitant]
     Active Substance: ACETAMINOPHEN\CODEINE PHOSPHATE
     Indication: PAIN
     Dosage: 1 DF, UNK
     Route: 048
     Dates: start: 20110712
  9. BETAMETHASONE. [Concomitant]
     Active Substance: BETAMETHASONE
     Indication: SKIN DISORDER
     Dosage: UNK, BID FOR 28 DAYS
     Route: 061
     Dates: start: 20150918
  10. OMEGA 3 [Concomitant]
     Active Substance: OMEGA-3 FATTY ACIDS
     Indication: FATTY ACID DEFICIENCY
     Dosage: 2 DF, QD
     Route: 048
  11. EXEMESTANE. [Concomitant]
     Active Substance: EXEMESTANE
     Indication: BREAST CANCER METASTATIC
     Dosage: 25 MG, QD
     Route: 048
     Dates: start: 20150707
  12. SALMETEROL [Concomitant]
     Active Substance: SALMETEROL
     Indication: BRONCHOSPASM
     Dosage: 2  PUFF
     Route: 065
     Dates: start: 20110712
  13. IBANDRONIC ACID [Concomitant]
     Active Substance: IBANDRONIC ACID
     Dosage: 50 MG, QD
     Route: 048
     Dates: start: 20150630
  14. ZOPICLONE [Concomitant]
     Active Substance: ZOPICLONE
     Indication: INSOMNIA
     Dosage: 3.7 MG, QD
     Route: 048
     Dates: start: 19970821
  15. AMITRIPTYLINE [Concomitant]
     Active Substance: AMITRIPTYLINE
     Indication: DEPRESSION
     Dosage: 10 MG, QD
     Route: 048
     Dates: start: 20110712
  16. IBANDRONIC ACID [Concomitant]
     Active Substance: IBANDRONIC ACID
     Indication: OSTEOPOROSIS
     Dosage: 50 MG, QD
     Route: 048
     Dates: start: 20120508
  17. LEVOTHYROXINE. [Concomitant]
     Active Substance: LEVOTHYROXINE
     Indication: THYROID DISORDER
     Dosage: 25 MG, QD
     Route: 048
     Dates: start: 20070707

REACTIONS (12)
  - Eating disorder [Unknown]
  - C-reactive protein increased [Recovered/Resolved]
  - Pneumonia [Recovered/Resolved]
  - Malaise [Unknown]
  - Infection [Unknown]
  - Productive cough [Recovering/Resolving]
  - Ear infection [Not Recovered/Not Resolved]
  - Dyspnoea [Unknown]
  - Blood creatinine increased [Unknown]
  - Cough [Unknown]
  - Odynophagia [Unknown]
  - Blood sodium decreased [Unknown]

NARRATIVE: CASE EVENT DATE: 20150917
